FAERS Safety Report 6184859-6 (Version None)
Quarter: 2009Q2

REPORT INFORMATION
  Report Type: 
  Country: None (occurrence: None)
  Receive Date: 20090508
  Receipt Date: 20090423
  Transmission Date: 20091009
  Serious: Yes (Hospitalization)
  Sender: FDA-Public Use
  Company Number: JP-GENENTECH-257256

PATIENT
  Sex: Male

DRUGS (8)
  1. RITUXAN [Suspect]
     Indication: DRUG USE FOR UNKNOWN INDICATION
     Dosage: 250 MG, UNK
     Route: 042
     Dates: start: 20061024, end: 20061031
  2. CELLCEPT [Suspect]
     Indication: PROPHYLAXIS AGAINST TRANSPLANT REJECTION
     Dosage: 1250 MG, QD
     Route: 048
     Dates: start: 20061102, end: 20061204
  3. PROGRAF [Concomitant]
     Indication: IMMUNOSUPPRESSION
     Dosage: 12 MG, UNK
     Route: 048
     Dates: start: 20061102
  4. PREDNISOLONE [Concomitant]
     Indication: IMMUNOSUPPRESSION
     Dosage: 10 MG, UNK
     Dates: start: 20061102
  5. PREDNISOLONE SODIUM SUCCINATE INJ [Concomitant]
     Indication: IMMUNOSUPPRESSION
     Dosage: 50 MG, UNK
     Dates: start: 20061107
  6. METHYLPREDNISOLONE 4MG TAB [Concomitant]
     Indication: IMMUNOSUPPRESSION
     Dosage: 500 MG, UNK
     Dates: start: 20061107
  7. GUSPERIMUS HYDROCHLORIDE [Concomitant]
     Indication: IMMUNOSUPPRESSION
     Dosage: 200 MG, UNK
     Dates: start: 20061107, end: 20061113
  8. MIZORIBINE [Concomitant]
     Indication: IMMUNOSUPPRESSION
     Dosage: UNK MG, QD
     Route: 048
     Dates: start: 20061202

REACTIONS (3)
  - BRONCHOPULMONARY ASPERGILLOSIS [None]
  - CYTOMEGALOVIRUS INFECTION [None]
  - NEOPLASM [None]
